FAERS Safety Report 5771470-1 (Version None)
Quarter: 2008Q2

REPORT INFORMATION
  Report Type: 
  Country: None (occurrence: None)
  Receive Date: 20080613
  Receipt Date: 20080606
  Transmission Date: 20081010
  Serious: Yes (Death)
  Sender: FDA-Public Use
  Company Number: AU-AVENTIS-200812150EU

PATIENT
  Age: 77 Year
  Sex: Female

DRUGS (1)
  1. RILUTEK [Suspect]
     Indication: MOTOR NEURONE DISEASE
     Route: 048
     Dates: start: 20070101

REACTIONS (2)
  - CONDITION AGGRAVATED [None]
  - MOTOR NEURONE DISEASE [None]
